FAERS Safety Report 9786490 (Version 4)
Quarter: 2014Q1

REPORT INFORMATION
  Report Type: Spontaneous
  Country: IL (occurrence: IL)
  Receive Date: 20131227
  Receipt Date: 20140210
  Transmission Date: 20141002
  Serious: Yes (Other)
  Sender: FDA-Public Use
  Company Number: IL-JNJFOC-20131214571

PATIENT
  Age: 82 Year
  Sex: Female

DRUGS (12)
  1. IBRUTINIB [Suspect]
     Indication: MANTLE CELL LYMPHOMA
     Route: 048
     Dates: start: 20131201
  2. IBRUTINIB [Suspect]
     Indication: MANTLE CELL LYMPHOMA
     Route: 048
     Dates: start: 20130112
  3. ELTROXIN [Concomitant]
     Indication: HYPOTHYROIDISM
  4. ZOLEDRONATE [Concomitant]
  5. LORATADINE [Concomitant]
  6. VAGIFEM [Concomitant]
  7. VITAMIN B12 [Concomitant]
  8. VITAMIN D [Concomitant]
  9. CALCIUM [Concomitant]
  10. NEUPOGEN [Concomitant]
  11. ARA-C [Concomitant]
  12. DEXACORT [Concomitant]

REACTIONS (2)
  - Hyponatraemia [Recovering/Resolving]
  - Rash papular [Recovering/Resolving]
